FAERS Safety Report 4525994-5 (Version None)
Quarter: 2004Q4

REPORT INFORMATION
  Report Type: 
  Country: None (occurrence: None)
  Receive Date: 20041129
  Receipt Date: 20040730
  Transmission Date: 20050328
  Serious: Yes (Hospitalization, Other)
  Sender: FDA-Public Use
  Company Number: USA040568709

PATIENT
  Age: 25 Year
  Sex: Male
  Weight: 118 kg

DRUGS (5)
  1. ZYPREXA [Suspect]
     Indication: SCHIZOAFFECTIVE DISORDER
     Dosage: 60 MG
     Dates: end: 20040517
  2. GEODON [Concomitant]
  3. LEXAPRO [Concomitant]
  4. WELLBUTRIN [Concomitant]
  5. RISPERIDONE [Concomitant]

REACTIONS (1)
  - DIABETIC KETOACIDOSIS [None]
